FAERS Safety Report 16501595 (Version 1)
Quarter: 2019Q2

REPORT INFORMATION
  Report Type: Spontaneous
  Country: US (occurrence: US)
  Receive Date: 20190520
  Receipt Date: 20190520
  Transmission Date: 20190711
  Serious: No
  Sender: FDA-Public Use
  Company Number: None

PATIENT
  Age: 24 Year
  Sex: Male

DRUGS (1)
  1. LETAIRIS [Suspect]
     Active Substance: AMBRISENTAN
     Indication: HEART DISEASE CONGENITAL
     Route: 048
     Dates: start: 20190310, end: 201904

REACTIONS (4)
  - Contusion [None]
  - Lethargy [None]
  - Abdominal pain [None]
  - Therapy cessation [None]

NARRATIVE: CASE EVENT DATE: 20190429
